FAERS Safety Report 6831163-6 (Version None)
Quarter: 2010Q3

REPORT INFORMATION
  Report Type: 
  Country: None (occurrence: None)
  Receive Date: 20100712
  Receipt Date: 20100702
  Transmission Date: 20110219
  Serious: Yes (Death)
  Sender: FDA-Public Use
  Company Number: US-JNJFOC-20100702341

PATIENT
  Age: 59 Year
  Sex: Male

DRUGS (13)
  1. HALOPERIDOL [Suspect]
     Indication: PRODUCT USED FOR UNKNOWN INDICATION
     Route: 065
  2. OLANZAPINE [Suspect]
     Indication: DELIRIUM
     Dosage: 1 DOSE OF 10 MG THE FIRST DAY,  2 DOSES OF 10 MG ON SECOND DAY,  3 DOSES OF 10 MG ON THIRD DAY
     Route: 030
  3. OLANZAPINE [Suspect]
     Indication: AGITATION
     Dosage: 1 DOSE OF 10 MG THE FIRST DAY,  2 DOSES OF 10 MG ON SECOND DAY,  3 DOSES OF 10 MG ON THIRD DAY
     Route: 030
  4. CHLORPROTHIXENE [Suspect]
     Indication: PRODUCT USED FOR UNKNOWN INDICATION
     Route: 065
  5. CLOZAPINE [Suspect]
     Indication: PRODUCT USED FOR UNKNOWN INDICATION
     Route: 065
  6. LEVOPROMAZINE [Suspect]
     Indication: PRODUCT USED FOR UNKNOWN INDICATION
     Route: 065
  7. CORDIAMIN [Suspect]
     Indication: PRODUCT USED FOR UNKNOWN INDICATION
     Route: 065
  8. TRIHEXYPHENIDYL HCL [Suspect]
     Indication: PRODUCT USED FOR UNKNOWN INDICATION
     Route: 065
  9. TISERCIN [Suspect]
     Indication: PRODUCT USED FOR UNKNOWN INDICATION
     Route: 065
  10. ZUCLOPENTHIXOL DECANOATE [Suspect]
     Indication: PRODUCT USED FOR UNKNOWN INDICATION
     Route: 065
  11. ZUCLOPENTHIXOL DECANOATE [Suspect]
     Route: 065
  12. CHLORPROMAZINE [Suspect]
     Indication: PRODUCT USED FOR UNKNOWN INDICATION
     Route: 065
  13. CHLORPROMAZINE [Suspect]
     Route: 065

REACTIONS (11)
  - ARTERIOSCLEROSIS [None]
  - CARDIAC DISORDER [None]
  - CARDIOMYOPATHY [None]
  - CONSTIPATION [None]
  - CYANOSIS [None]
  - HYPERTENSION [None]
  - ISCHAEMIA [None]
  - PULMONARY EMBOLISM [None]
  - TACHYCARDIA [None]
  - TREMOR [None]
  - URINARY RETENTION [None]
